FAERS Safety Report 17470724 (Version 8)
Quarter: 2020Q4

REPORT INFORMATION
  Report Type: Report from Study
  Country: JP (occurrence: JP)
  Receive Date: 20200228
  Receipt Date: 20201227
  Transmission Date: 20210113
  Serious: Yes (Hospitalization, Other)
  Sender: FDA-Public Use
  Company Number: JP-ALEXION PHARMACEUTICALS INC.-A202002119

PATIENT
  Age: 47 Year
  Sex: Male
  Weight: 70 kg

DRUGS (8)
  1. DRUG NOT ADMINISTERED [Concomitant]
     Active Substance: UNSPECIFIED INGREDIENT
     Indication: PROPHYLAXIS
     Dosage: 10 MG, QD
     Route: 048
     Dates: start: 20200208, end: 20200412
  2. HIRUDOID                           /00723701/ [Concomitant]
     Active Substance: PENTOSAN POLYSULFATE SODIUM
     Indication: DRY SKIN PROPHYLAXIS
     Dosage: APPROPRIATE AMOUNT,UNK
     Route: 065
     Dates: start: 20200219, end: 20200325
  3. ULTOMIRIS [Suspect]
     Active Substance: RAVULIZUMAB-CWVZ
     Dosage: 3300 MG, ONCE EVERY TWO MONTHS
     Route: 042
     Dates: start: 20191122
  4. LOXOPROFEN [Concomitant]
     Active Substance: LOXOPROFEN
     Indication: PRODUCT USED FOR UNKNOWN INDICATION
     Dosage: UNK
     Route: 065
  5. ULTOMIRIS [Suspect]
     Active Substance: RAVULIZUMAB-CWVZ
     Indication: PAROXYSMAL NOCTURNAL HAEMOGLOBINURIA
     Dosage: 2700 MG, Q2W
     Route: 042
     Dates: start: 20191108
  6. HACHIAZULE                         /00317302/ [Concomitant]
     Indication: PROPHYLAXIS
     Dosage: 2 G, TID
     Route: 065
     Dates: start: 20200210, end: 20200304
  7. FEBURIC [Concomitant]
     Active Substance: FEBUXOSTAT
     Indication: HYPERURICAEMIA
     Dosage: 10 MG, QD
     Route: 048
     Dates: start: 20181130
  8. ZALUTIA [Concomitant]
     Active Substance: TADALAFIL
     Indication: BENIGN PROSTATIC HYPERPLASIA
     Dosage: 2.5 MG, QD
     Route: 048
     Dates: start: 20150807, end: 20191219

REACTIONS (7)
  - Constipation [Recovered/Resolved]
  - Gonococcal infection [Recovering/Resolving]
  - Insomnia [Recovered/Resolved]
  - Condition aggravated [Recovering/Resolving]
  - Paroxysmal nocturnal haemoglobinuria [Recovering/Resolving]
  - Vasculitis [Recovered/Resolved]
  - Bacterial sepsis [Recovering/Resolving]

NARRATIVE: CASE EVENT DATE: 20200205
